FAERS Safety Report 5876525-9 (Version None)
Quarter: 2008Q3

REPORT INFORMATION
  Report Type: 
  Country: None (occurrence: None)
  Receive Date: 20080910
  Receipt Date: 20080905
  Transmission Date: 20090109
  Serious: Yes (Hospitalization, Other)
  Sender: FDA-Public Use
  Company Number: CH-WYE-G02113808

PATIENT
  Age: 30 Year
  Sex: Male

DRUGS (3)
  1. TAZOBACTAM [Suspect]
     Indication: LOBAR PNEUMONIA
     Dosage: 4.5 G EVERY 1 TOT
     Route: 042
     Dates: start: 20080808, end: 20080808
  2. MERONEM [Concomitant]
     Indication: LOBAR PNEUMONIA
     Route: 042
     Dates: start: 20080808, end: 20080811
  3. KLACID [Suspect]
     Indication: LOBAR PNEUMONIA
     Dosage: 500 MG EVERY 1 TOT
     Route: 042
     Dates: start: 20080808, end: 20080808

REACTIONS (4)
  - CONDITION AGGRAVATED [None]
  - DERMATITIS EXFOLIATIVE [None]
  - DYSPNOEA [None]
  - TACHYCARDIA [None]
